FAERS Safety Report 14781966 (Version 1)
Quarter: 2018Q2

REPORT INFORMATION
  Report Type: Spontaneous
  Country: FR (occurrence: FR)
  Receive Date: 20180420
  Receipt Date: 20180420
  Transmission Date: 20180711
  Serious: Yes (Other)
  Sender: FDA-Public Use
  Company Number: FR-MERCK KGAA-2046112

PATIENT
  Age: 66 Year
  Sex: Female

DRUGS (1)
  1. NOVOTHYROX [Suspect]
     Active Substance: LEVOTHYROXINE SODIUM
     Indication: POST PROCEDURAL HYPOTHYROIDISM
     Dates: start: 201705

REACTIONS (15)
  - Irritability [None]
  - Asthenia [None]
  - Apathy [None]
  - Drug intolerance [None]
  - Arthralgia [None]
  - Gait disturbance [None]
  - Pain in extremity [None]
  - Tendon pain [None]
  - Somnolence [None]
  - Weight increased [None]
  - Dizziness [Recovered/Resolved]
  - Palpitations [None]
  - Fatigue [None]
  - Physical disability [None]
  - Social avoidant behaviour [None]

NARRATIVE: CASE EVENT DATE: 2017
